FAERS Safety Report 6322349-8 (Version None)
Quarter: 2009Q3

REPORT INFORMATION
  Report Type: 
  Country: None (occurrence: None)
  Receive Date: 20090824
  Receipt Date: 20090204
  Transmission Date: 20100115
  Serious: No
  Sender: FDA-Public Use
  Company Number: US-ABBOTT-09P-163-0501916-00

PATIENT
  Sex: Male
  Weight: 81.72 kg

DRUGS (5)
  1. NIASPAN [Suspect]
     Indication: BLOOD TRIGLYCERIDES INCREASED
     Dates: start: 20081105
  2. ASPIRIN [Concomitant]
     Indication: PREMEDICATION
  3. LIPITOR [Concomitant]
     Indication: DRUG USE FOR UNKNOWN INDICATION
  4. DARVOCET [Concomitant]
     Indication: INTERVERTEBRAL DISC PROTRUSION
  5. XALTAN [Concomitant]
     Indication: GLAUCOMA
     Route: 047

REACTIONS (1)
  - FLUSHING [None]
